FAERS Safety Report 6355040-2 (Version None)
Quarter: 2009Q3

REPORT INFORMATION
  Report Type: 
  Country: None (occurrence: None)
  Receive Date: 20090914
  Receipt Date: 20090904
  Transmission Date: 20100115
  Serious: Yes (Other)
  Sender: FDA-Public Use
  Company Number: B0592942A

PATIENT
  Sex: Female

DRUGS (1)
  1. SERETIDE [Suspect]
     Dates: start: 20090620

REACTIONS (2)
  - ANGINA PECTORIS [None]
  - TACHYCARDIA [None]
